FAERS Safety Report 21532064 (Version 1)
Quarter: 2022Q4

REPORT INFORMATION
  Report Type: Report from Study
  Country: CA (occurrence: CA)
  Receive Date: 20221101
  Receipt Date: 20221101
  Transmission Date: 20230113
  Serious: Yes (Other)
  Sender: FDA-Public Use
  Company Number: CA-ABBVIE-4180499

PATIENT
  Sex: Female

DRUGS (1)
  1. RINVOQ [Suspect]
     Active Substance: UPADACITINIB
     Indication: Psoriatic arthropathy
     Dosage: FIRST ADMIN DATE 11 APR 2022, FORM STRENGTH: 15 MILLIGRAM
     Route: 048
     Dates: end: 20220825

REACTIONS (2)
  - Ligament operation [Unknown]
  - Meniscus operation [Unknown]

NARRATIVE: CASE EVENT DATE: 20220101
